FAERS Safety Report 23176592 (Version 1)
Quarter: 2023Q4

REPORT INFORMATION
  Report Type: Spontaneous
  Country: US (occurrence: US)
  Receive Date: 20231113
  Receipt Date: 20231113
  Transmission Date: 20240109
  Serious: No
  Sender: FDA-Public Use
  Company Number: US-PERRIGO-22US014101

PATIENT
  Age: 77 Year
  Sex: Male
  Weight: 95.238 kg

DRUGS (1)
  1. POLYETHYLENE GLYCOL 3350 [Suspect]
     Active Substance: POLYETHYLENE GLYCOL 3350
     Indication: Constipation
     Dosage: 8.5 G, EVERY EVENING PRN
     Route: 048
     Dates: end: 20221023

REACTIONS (3)
  - Abdominal discomfort [Recovered/Resolved]
  - Foreign body ingestion [Recovered/Resolved]
  - Underdose [Recovered/Resolved]

NARRATIVE: CASE EVENT DATE: 20221017
